FAERS Safety Report 16163003 (Version 1)
Quarter: 2019Q2

REPORT INFORMATION
  Report Type: Spontaneous
  Country: US (occurrence: US)
  Receive Date: 20190304
  Receipt Date: 20190304
  Transmission Date: 20190711
  Serious: No
  Sender: FDA-Public Use
  Company Number: None

PATIENT
  Age: 79 Year
  Sex: Female
  Weight: 52.16 kg

DRUGS (3)
  1. TYLENOL [Concomitant]
     Active Substance: ACETAMINOPHEN
  2. DYAZIDE [Concomitant]
     Active Substance: HYDROCHLOROTHIAZIDE\TRIAMTERENE
  3. APIDRA SOLOSTAR [Suspect]
     Active Substance: INSULIN GLULISINE
     Indication: DIABETES MELLITUS
     Dosage: ?          QUANTITY:B-3, L-5, D-8 U ;?
     Dates: start: 20110202

REACTIONS (5)
  - Peripheral swelling [None]
  - Hair growth abnormal [None]
  - Pain in extremity [None]
  - Induration [None]
  - Tongue discolouration [None]

NARRATIVE: CASE EVENT DATE: 20111203
